FAERS Safety Report 5136489-2 (Version None)
Quarter: 2006Q4

REPORT INFORMATION
  Report Type: 
  Country: None (occurrence: None)
  Receive Date: 20061020
  Receipt Date: 20061009
  Transmission Date: 20070319
  Serious: Yes (Death, Hospitalization)
  Sender: FDA-Public Use
  Company Number: 2006BH013965

PATIENT
  Sex: Female
  Weight: 50 kg

DRUGS (5)
  1. EXTRANEAL [Suspect]
     Indication: ANURIA
     Dosage: 2 L; EVERY DAY; IP
     Route: 033
     Dates: start: 20051031, end: 20060930
  2. EXTRANEAL [Suspect]
     Indication: PERITONEAL DIALYSIS
     Dosage: 2 L; EVERY DAY; IP
     Route: 033
     Dates: start: 20051031, end: 20060930
  3. DIANEAL [Suspect]
     Indication: DRUG USE FOR UNKNOWN INDICATION
     Dosage: SEE IMAGE
     Route: 033
     Dates: end: 20060927
  4. DIANEAL [Suspect]
     Indication: DRUG USE FOR UNKNOWN INDICATION
     Dosage: SEE IMAGE
     Route: 033
     Dates: start: 20060927, end: 20061001
  5. DIANEAL [Suspect]
     Indication: DRUG USE FOR UNKNOWN INDICATION
     Dosage: SEE IMAGE
     Route: 033
     Dates: start: 20060927, end: 20061001

REACTIONS (5)
  - DIET REFUSAL [None]
  - GASTROINTESTINAL PERFORATION [None]
  - HAEMODIALYSIS [None]
  - HYPERTENSION [None]
  - PERITONITIS BACTERIAL [None]
